FAERS Safety Report 7067378-4 (Version None)
Quarter: 2010Q4

REPORT INFORMATION
  Report Type: 
  Country: None (occurrence: None)
  Receive Date: 20101028
  Receipt Date: 20101020
  Transmission Date: 20110411
  Serious: Yes (Hospitalization, Other)
  Sender: FDA-Public Use
  Company Number: US-US-EMD SERONO, INC.-233143J10USA

PATIENT
  Sex: Female
  Weight: 82 kg

DRUGS (16)
  1. REBIF [Suspect]
     Indication: MULTIPLE SCLEROSIS
     Route: 058
     Dates: start: 20070501, end: 20100201
  2. REBIF [Suspect]
     Route: 058
     Dates: start: 20100324, end: 20100503
  3. REBIF [Suspect]
     Route: 058
     Dates: start: 20100101, end: 20100712
  4. REBIF [Suspect]
     Route: 058
     Dates: start: 20100101
  5. VALIUM [Concomitant]
     Indication: MUSCLE SPASMS
     Route: 048
     Dates: start: 19930101
  6. VALIUM [Concomitant]
     Indication: TREMOR
     Dates: start: 20100501, end: 20100101
  7. VALIUM [Concomitant]
     Dates: start: 20100101
  8. VALIUM [Concomitant]
  9. PROTONIX [Concomitant]
     Indication: REFLUX GASTRITIS
  10. ATROVENT [Concomitant]
     Indication: ASTHMA
     Route: 055
  11. HYDROCHLOROTHIAZIDE [Concomitant]
     Indication: HYPERTENSION
  12. PROZAC [Concomitant]
     Indication: DEPRESSION
  13. PROZAC [Concomitant]
  14. VICODIN [Concomitant]
     Indication: BACK PAIN
  15. TRAMADOL HCL [Concomitant]
     Indication: BACK PAIN
  16. OMEPRAZOLE [Concomitant]
     Indication: GASTROOESOPHAGEAL REFLUX DISEASE

REACTIONS (23)
  - AGITATION [None]
  - ASTHENIA [None]
  - BACK PAIN [None]
  - CARDITIS [None]
  - CONFUSIONAL STATE [None]
  - COORDINATION ABNORMAL [None]
  - DECREASED APPETITE [None]
  - DEPRESSION [None]
  - FALL [None]
  - FATIGUE [None]
  - HEART RATE INCREASED [None]
  - HYPERTENSION [None]
  - MEMORY IMPAIRMENT [None]
  - MIGRAINE [None]
  - MUSCLE SPASMS [None]
  - MYALGIA [None]
  - MYOCARDIAL INFARCTION [None]
  - PANIC ATTACK [None]
  - PNEUMONIA [None]
  - RESPIRATORY TRACT CONGESTION [None]
  - ROAD TRAFFIC ACCIDENT [None]
  - SUICIDAL IDEATION [None]
  - TREMOR [None]
